FAERS Safety Report 18970989 (Version 2)
Quarter: 2021Q1

REPORT INFORMATION
  Report Type: Spontaneous
  Country: IT (occurrence: IT)
  Receive Date: 20210305
  Receipt Date: 20210330
  Transmission Date: 20210420
  Serious: Yes (Hospitalization, Other)
  Sender: FDA-Public Use
  Company Number: IT-SA-2021SA073188

PATIENT
  Age: 33 Year
  Sex: Male

DRUGS (3)
  1. LEMTRADA [Suspect]
     Active Substance: ALEMTUZUMAB
     Dosage: UNK
     Dates: start: 2019, end: 201911
  2. LEMTRADA [Suspect]
     Active Substance: ALEMTUZUMAB
     Dosage: UNK
     Dates: start: 20181108, end: 2018
  3. PEGYLATED INTERFERON ALPHA NOS [Concomitant]
     Active Substance: PEGINTERFERON ALFA-2A OR PEGINTERFERON ALFA-2B
     Indication: PRODUCT USED FOR UNKNOWN INDICATION

REACTIONS (7)
  - COVID-19 [Recovered/Resolved]
  - Autoimmune anaemia [Recovered/Resolved]
  - Platelet count decreased [Recovering/Resolving]
  - Gingival bleeding [Recovering/Resolving]
  - SARS-CoV-2 test positive [Recovered/Resolved]
  - Thrombocytopenia [Recovering/Resolving]
  - Thyroglobulin increased [Unknown]

NARRATIVE: CASE EVENT DATE: 201906
